FAERS Safety Report 8433521-5 (Version None)
Quarter: 2012Q2

REPORT INFORMATION
  Report Type: 
  Country: None (occurrence: None)
  Receive Date: 20120613
  Receipt Date: 20120531
  Transmission Date: 20120825
  Serious: No
  Sender: FDA-Public Use
  Company Number: US-ASTRAZENECA-2012SE36147

PATIENT
  Age: 68 Year
  Sex: Female

DRUGS (4)
  1. CRESTOR [Suspect]
     Indication: BLOOD CHOLESTEROL INCREASED
     Route: 048
  2. BENTYL [Concomitant]
     Indication: ABDOMINAL DISCOMFORT
  3. ACIPHEX [Concomitant]
     Indication: GASTROOESOPHAGEAL REFLUX DISEASE
  4. LORAZEPAM [Concomitant]
     Indication: ANXIETY

REACTIONS (1)
  - FAECES DISCOLOURED [None]
